FAERS Safety Report 4617156-8 (Version None)
Quarter: 2005Q1

REPORT INFORMATION
  Report Type: 
  Country: None (occurrence: None)
  Receive Date: 20050323
  Receipt Date: 20050310
  Transmission Date: 20050727
  Serious: Yes (Hospitalization)
  Sender: FDA-Public Use
  Company Number: CA-GLAXOSMITHKLINE-A0549292A

PATIENT
  Age: 17 Year
  Sex: Male
  Weight: 68 kg

DRUGS (6)
  1. GW433908 [Suspect]
     Indication: HIV INFECTION
     Dosage: 700MG TWICE PER DAY
     Route: 048
     Dates: start: 20050301, end: 20050309
  2. RITONAVIR [Suspect]
     Indication: HIV INFECTION
     Dosage: 100MG TWICE PER DAY
     Route: 048
     Dates: start: 20050301, end: 20050309
  3. ZIAGEN [Suspect]
     Indication: HIV INFECTION
     Dosage: 300MG TWICE PER DAY
     Route: 048
     Dates: start: 20050301, end: 20050309
  4. LAMIVUDINE [Concomitant]
     Indication: HIV INFECTION
     Dosage: 150MG TWICE PER DAY
     Route: 048
     Dates: start: 20050228, end: 20050309
  5. SEPTRA [Concomitant]
     Dosage: 80MG PER DAY
     Route: 048
     Dates: start: 20040601
  6. TYLENOL (CAPLET) [Concomitant]
     Dosage: 650MG AS REQUIRED
     Route: 048
     Dates: start: 20050306

REACTIONS (17)
  - ABDOMINAL PAIN [None]
  - CHILLS [None]
  - CONJUNCTIVITIS [None]
  - COUGH [None]
  - DECREASED APPETITE [None]
  - ERYTHEMA [None]
  - FATIGUE [None]
  - HEADACHE [None]
  - HYPERSENSITIVITY [None]
  - MALAISE [None]
  - MYALGIA [None]
  - NAUSEA [None]
  - PYREXIA [None]
  - RASH MACULO-PAPULAR [None]
  - RASH SCARLATINIFORM [None]
  - SKIN EXFOLIATION [None]
  - TACHYCARDIA [None]
